FAERS Safety Report 9080225 (Version 1)
Quarter: 2013Q1

REPORT INFORMATION
  Report Type: Spontaneous
  Country: DE (occurrence: DE)
  Receive Date: 20130218
  Receipt Date: 20130218
  Transmission Date: 20140127
  Serious: Yes (Hospitalization)
  Sender: FDA-Public Use
  Company Number: PHHY2013DE014295

PATIENT
  Age: 69 Year
  Sex: Male

DRUGS (6)
  1. MYCOPHENOLATE MOFETIL [Suspect]
  2. TACROLIMUS [Suspect]
  3. STEROIDS NOS [Concomitant]
  4. AMLODIPINE [Concomitant]
  5. METOPROLOL [Concomitant]
  6. PANTOPRAZOLE [Concomitant]

REACTIONS (9)
  - IgA nephropathy [Recovered/Resolved]
  - Henoch-Schonlein purpura [Recovered/Resolved]
  - Palpable purpura [Recovered/Resolved]
  - Skin ulcer [Recovered/Resolved]
  - Arthralgia [Recovered/Resolved]
  - Epidermolysis [Recovered/Resolved]
  - Proteinuria [Recovered/Resolved]
  - Haematuria [Recovered/Resolved]
  - Cutaneous vasculitis [Recovered/Resolved]
